FAERS Safety Report 14530262 (Version 1)
Quarter: 2018Q1

REPORT INFORMATION
  Report Type: Spontaneous
  Country: IT (occurrence: IT)
  Receive Date: 20180214
  Receipt Date: 20180214
  Transmission Date: 20180509
  Serious: Yes (Other)
  Sender: FDA-Public Use
  Company Number: IT-GLAXOSMITHKLINE-IT2018020931

PATIENT
  Age: 48 Year
  Sex: Female

DRUGS (4)
  1. WELLBUTRIN [Suspect]
     Active Substance: BUPROPION HYDROCHLORIDE
     Indication: BIPOLAR DISORDER
     Dosage: IN TOTAL
     Route: 048
  2. ATARAX [Suspect]
     Active Substance: HYDROXYZINE HYDROCHLORIDE
     Indication: BIPOLAR DISORDER
     Dosage: IN TOTAL
     Route: 048
  3. RITALIN [Suspect]
     Active Substance: METHYLPHENIDATE HYDROCHLORIDE
     Indication: ATTENTION DEFICIT/HYPERACTIVITY DISORDER
     Dosage: IN TOTAL
     Route: 048
  4. EN [Suspect]
     Active Substance: DELORAZEPAM
     Indication: BIPOLAR DISORDER
     Dosage: IN TOTAL
     Route: 048

REACTIONS (6)
  - Toxicity to various agents [Recovering/Resolving]
  - Abdominal pain upper [Recovering/Resolving]
  - Bradyphrenia [Recovering/Resolving]
  - Depressed level of consciousness [Recovering/Resolving]
  - Tachycardia [Recovering/Resolving]
  - Blood pressure decreased [Recovering/Resolving]

NARRATIVE: CASE EVENT DATE: 20170303
